FAERS Safety Report 10611167 (Version 1)
Quarter: 2014Q4

REPORT INFORMATION
  Report Type: Report from Study
  Country: US (occurrence: US)
  Receive Date: 20141126
  Receipt Date: 20141126
  Transmission Date: 20150529
  Serious: Yes (Hospitalization)
  Sender: FDA-Public Use
  Company Number: US-TEVA-524520USA

PATIENT
  Age: 31 Year
  Sex: Female
  Weight: 74.14 kg

DRUGS (24)
  1. FLUOROURACIL. [Suspect]
     Active Substance: FLUOROURACIL
     Indication: PRODUCT USED FOR UNKNOWN INDICATION
     Dosage: UNKNOWN
     Route: 065
     Dates: start: 20140714
  2. TEMSIROLIMUS [Suspect]
     Active Substance: TEMSIROLIMUS
     Dosage: 3.5714 MILLIGRAM DAILY;
     Route: 042
     Dates: start: 20140428, end: 20140616
  3. TARCEVA [Suspect]
     Active Substance: ERLOTINIB HYDROCHLORIDE
     Dosage: 100 MILLIGRAM DAILY;
     Route: 048
     Dates: start: 20140428, end: 20140616
  4. XANAX [Concomitant]
     Active Substance: ALPRAZOLAM
     Dosage: 1.5 MILLIGRAM DAILY;
     Route: 048
     Dates: start: 20140606, end: 20140727
  5. TARCEVA [Suspect]
     Active Substance: ERLOTINIB HYDROCHLORIDE
     Indication: SQUAMOUS CELL CARCINOMA
     Dosage: 100 MILLIGRAM DAILY;
     Route: 048
     Dates: start: 20140303, end: 20140422
  6. OXYCODONE [Concomitant]
     Active Substance: OXYCODONE
     Dosage: EVERY 2 HOURS AS NEEDED
     Dates: start: 20140623
  7. FOLINIC ACID [Suspect]
     Active Substance: LEUCOVORIN
     Indication: PRODUCT USED FOR UNKNOWN INDICATION
     Dosage: UNKNOWN
     Route: 065
     Dates: start: 20140714
  8. PROCHLORPERAZINE. [Concomitant]
     Active Substance: PROCHLORPERAZINE
     Route: 048
     Dates: start: 20140324
  9. TARCEVA [Suspect]
     Active Substance: ERLOTINIB HYDROCHLORIDE
     Dosage: 100 MILLIGRAM DAILY;
     Route: 048
     Dates: start: 20140710, end: 20140710
  10. SERTRALINE [Concomitant]
     Active Substance: SERTRALINE HYDROCHLORIDE
     Route: 048
     Dates: start: 20140512, end: 20140727
  11. COLACE [Concomitant]
     Active Substance: DOCUSATE SODIUM
     Route: 048
     Dates: start: 20140704
  12. TRIAMCINOLONE [Concomitant]
     Active Substance: TRIAMCINOLONE
     Dosage: 0.1%
     Route: 061
     Dates: start: 20140310
  13. TYLENOL [Concomitant]
     Active Substance: ACETAMINOPHEN
     Dosage: 4000 MILLIGRAM DAILY;
     Route: 048
     Dates: start: 20140305
  14. OXYCONTIN [Concomitant]
     Active Substance: OXYCODONE HYDROCHLORIDE
     Dosage: 60 MILLIGRAM DAILY;
     Route: 048
     Dates: start: 20140607
  15. OXALIPLATIN INJECTION 50MG/10 ML AND 100MG/20ML [Suspect]
     Active Substance: OXALIPLATIN
     Indication: PRODUCT USED FOR UNKNOWN INDICATION
     Dosage: UNKNOWN
     Route: 065
     Dates: start: 20140714
  16. DESONIDE. [Concomitant]
     Active Substance: DESONIDE
     Dosage: 0.05%
     Route: 061
     Dates: start: 20140408
  17. SERTRALINE [Concomitant]
     Active Substance: SERTRALINE HYDROCHLORIDE
     Route: 048
     Dates: start: 20140728
  18. OXYCODONE W/PARACETAMOL [Concomitant]
     Active Substance: ACETAMINOPHEN\OXYCODONE HYDROCHLORIDE
     Dosage: 5MG-325MG
     Route: 048
     Dates: start: 201307
  19. GABAPENTIN. [Concomitant]
     Active Substance: GABAPENTIN
     Dosage: 3600 MILLIGRAM DAILY;
     Route: 048
     Dates: start: 20140606
  20. DEXAMETHASONE. [Concomitant]
     Active Substance: DEXAMETHASONE
     Dosage: 6 MILLIGRAM DAILY;
     Route: 048
     Dates: start: 20140623
  21. TEMSIROLIMUS [Suspect]
     Active Substance: TEMSIROLIMUS
     Indication: SQUAMOUS CELL CARCINOMA
     Dosage: 3.5714 MILLIGRAM DAILY;
     Route: 042
     Dates: start: 20140310, end: 20140414
  22. ONDANSETRON [Concomitant]
     Active Substance: ONDANSETRON
     Route: 048
     Dates: start: 20140312
  23. MAGIC MOUTHWASH [Concomitant]
     Active Substance: DIPHENHYDRAMINE HYDROCHLORIDE\LIDOCAINE HYDROCHLORIDE\NYSTATIN
     Dosage: 5ML, AS NEEDED
     Dates: start: 20140407
  24. XANAX [Concomitant]
     Active Substance: ALPRAZOLAM
     Dosage: 3 MILLIGRAM DAILY;
     Route: 048
     Dates: start: 20140728

REACTIONS (3)
  - Nausea [Unknown]
  - Coccydynia [Unknown]
  - Abdominal pain [Unknown]

NARRATIVE: CASE EVENT DATE: 20140731
